FAERS Safety Report 17363477 (Version 1)
Quarter: 2020Q1

REPORT INFORMATION
  Report Type: Spontaneous
  Country: US (occurrence: US)
  Receive Date: 20200203
  Receipt Date: 20200203
  Transmission Date: 20200409
  Serious: No
  Sender: FDA-Public Use
  Company Number: US-009507513-2001USA010949

PATIENT
  Sex: Male

DRUGS (2)
  1. TICE BCG [Suspect]
     Active Substance: BACILLUS CALMETTE-GUERIN SUBSTRAIN TICE LIVE ANTIGEN
     Dosage: 50 MILLIGRAM, QW FOR THREE WEEKS. ROUTE OF ADMINISTRATION REPORTED AS: CATHETER
     Dates: start: 201911
  2. TICE BCG [Suspect]
     Active Substance: BACILLUS CALMETTE-GUERIN SUBSTRAIN TICE LIVE ANTIGEN
     Indication: BLADDER CANCER
     Dosage: 50 MILLIGRAM, QW FOR SIX DOSES. ROUTE OF ADMINISTRATION REPORTED AS: CATHETER
     Dates: start: 201904

REACTIONS (1)
  - Benign prostatic hyperplasia [Recovering/Resolving]
